FAERS Safety Report 17145601 (Version 2)
Quarter: 2020Q1

REPORT INFORMATION
  Report Type: Spontaneous
  Country: GB (occurrence: GB)
  Receive Date: 20191212
  Receipt Date: 20200106
  Transmission Date: 20200409
  Serious: Yes (Hospitalization)
  Sender: FDA-Public Use
  Company Number: GB-MYLANLABS-2019M1122303

PATIENT
  Sex: Male

DRUGS (7)
  1. CLOZARIL [Suspect]
     Active Substance: CLOZAPINE
     Dosage: UNK
     Route: 048
     Dates: end: 2019
  2. LANSOPRAZOLE. [Concomitant]
     Active Substance: LANSOPRAZOLE
     Dosage: 30 MILLIGRAM, QD
     Route: 048
  3. RAMIPRIL. [Concomitant]
     Active Substance: RAMIPRIL
     Dosage: 2.5 MILLIGRAM, QD
     Route: 048
  4. CLOZARIL [Suspect]
     Active Substance: CLOZAPINE
     Indication: SCHIZOPHRENIA
     Dosage: 100 MILLIGRAM, PM
     Route: 048
     Dates: start: 20121008
  5. AMISULPRIDE [Concomitant]
     Active Substance: AMISULPRIDE
     Dosage: 100 MILLIGRAM, AM
     Route: 048
  6. AMISULPRIDE [Concomitant]
     Active Substance: AMISULPRIDE
     Dosage: 200 MILLIGRAM, PM
     Route: 048
  7. MICROGEL                           /01346401/ [Concomitant]
     Dosage: 1 DOSAGE FORM, BID (1 SACHET)
     Route: 048

REACTIONS (1)
  - Hospitalisation [Recovering/Resolving]
